FAERS Safety Report 10900674 (Version 1)
Quarter: 2015Q1

REPORT INFORMATION
  Report Type: Spontaneous
  Country: IL (occurrence: None)
  Receive Date: 20150303
  Receipt Date: 20150303
  Transmission Date: 20150721
  Serious: Yes (Other)
  Sender: FDA-Public Use
  Company Number: 2015AP006902

PATIENT
  Age: 13 Year

DRUGS (4)
  1. DEFEROXAMINE [Concomitant]
     Active Substance: DEFEROXAMINE\DEFEROXAMINE MESYLATE
  2. FERRIPROX [Suspect]
     Active Substance: DEFERIPRONE
     Indication: THALASSAEMIA BETA
  3. CALCIUM [Concomitant]
     Active Substance: CALCIUM
  4. VITAMIN D (ERGOCALCIFEROL) [Concomitant]
     Active Substance: ERGOCALCIFEROL

REACTIONS (1)
  - Nephrolithiasis [None]
